FAERS Safety Report 17555023 (Version 1)
Quarter: 2020Q1

REPORT INFORMATION
  Report Type: Spontaneous
  Country: US (occurrence: US)
  Receive Date: 20200309
  Receipt Date: 20200309
  Transmission Date: 20200409
  Serious: Yes (Hospitalization)
  Sender: FDA-Public Use
  Company Number: None

PATIENT
  Age: 45 Year
  Sex: Female
  Weight: 59.87 kg

DRUGS (10)
  1. BISOPROLOL [Concomitant]
     Active Substance: BISOPROLOL
  2. ALBUTEROL. [Concomitant]
     Active Substance: ALBUTEROL
  3. OMEPRAZOLE. [Concomitant]
     Active Substance: OMEPRAZOLE
  4. ST. JOHNS WORT [Concomitant]
     Active Substance: HYPERICUM PERFORATUM WHOLE
  5. BISOPROLOL FUMARATE TAB 5MG [Suspect]
     Active Substance: BISOPROLOL FUMARATE
     Indication: SUPRAVENTRICULAR TACHYCARDIA
     Dosage: ?          QUANTITY:1 DF DOSAGE FORM;?
     Route: 048
     Dates: start: 20191126, end: 20200106
  6. MELOXICAM. [Concomitant]
     Active Substance: MELOXICAM
  7. MONTELUKAST [Concomitant]
     Active Substance: MONTELUKAST SODIUM
  8. BENIFIBER [Concomitant]
  9. ASPRIN [Concomitant]
     Active Substance: ASPIRIN
  10. ONE A DAY WOMANS VITIMINS [Concomitant]

REACTIONS (7)
  - Diarrhoea [None]
  - Dyspnoea [None]
  - Extrasystoles [None]
  - Depression [None]
  - Decreased appetite [None]
  - Supraventricular tachycardia [None]
  - Faeces discoloured [None]

NARRATIVE: CASE EVENT DATE: 20191213
